FAERS Safety Report 5767736-1 (Version None)
Quarter: 2008Q2

REPORT INFORMATION
  Report Type: 
  Country: None (occurrence: None)
  Receive Date: 20080610
  Receipt Date: 20080530
  Transmission Date: 20081010
  Serious: Yes (Hospitalization, Other)
  Sender: FDA-Public Use
  Company Number: 151-21880-08051705

PATIENT
  Age: 67 Year
  Sex: Male
  Weight: 84 kg

DRUGS (12)
  1. REVLIMID [Suspect]
     Indication: MULTIPLE MYELOMA
     Dosage: 25 MG, 1 IN 1 D, ORAL
     Route: 048
     Dates: start: 20080310, end: 20080422
  2. DEXAMETHASONE TAB [Concomitant]
  3. METOPROLOL TARTRATE [Concomitant]
  4. COSAAR (LOSARTAN POTASSIUM) [Concomitant]
  5. ASPIRIN [Concomitant]
  6. SIMCORA (SIMVASTATIN) [Concomitant]
  7. GLUCOPHAGE [Concomitant]
  8. ESIDRIX [Concomitant]
  9. NEXIUM [Concomitant]
  10. ALLOPURINOL [Concomitant]
  11. TRANSTEC (BUPRENORPHINE) [Concomitant]
  12. ARANESP [Concomitant]

REACTIONS (9)
  - ALLODYNIA [None]
  - ERYTHEMA NODOSUM [None]
  - NEPHROPATHY TOXIC [None]
  - NEUROPATHY PERIPHERAL [None]
  - OEDEMA PERIPHERAL [None]
  - POLYNEUROPATHY [None]
  - PYODERMA GANGRENOSUM [None]
  - RENAL FAILURE [None]
  - SKIN NECROSIS [None]
